FAERS Safety Report 10241613 (Version 1)
Quarter: 2014Q2

REPORT INFORMATION
  Report Type: Spontaneous
  Country: IT (occurrence: IT)
  Receive Date: 20140617
  Receipt Date: 20140617
  Transmission Date: 20141212
  Serious: Yes (Disabling, Other)
  Sender: FDA-Public Use
  Company Number: IT-ACTAVIS-2014-13620

PATIENT
  Age: 68 Year
  Sex: Female

DRUGS (3)
  1. ZOLEDRONIC ACID [Suspect]
     Indication: METASTASES TO BONE
     Dosage: 4 MG, ONCE A MONTH; 18 CYCLES
     Route: 065
  2. CISPLATIN [Concomitant]
     Indication: THYROID CANCER
     Dosage: 60 MG/M2, EVERY 3-4 WEEKS
     Route: 065
  3. EPIRUBICIN [Concomitant]
     Indication: THYROID CANCER
     Dosage: 75 MG/M2, EVERY 3-4 WEEKS
     Route: 065

REACTIONS (1)
  - Osteonecrosis of jaw [Recovered/Resolved]
